FAERS Safety Report 14166540 (Version 1)
Quarter: 2017Q4

REPORT INFORMATION
  Report Type: Spontaneous
  Country: US (occurrence: US)
  Receive Date: 20171107
  Receipt Date: 20171107
  Transmission Date: 20180321
  Serious: Yes (Other)
  Sender: FDA-Public Use
  Company Number: US-PROCTER+GAMBLE-GS17122194

PATIENT
  Sex: Male

DRUGS (1)
  1. VICKS SINEX NOS [Suspect]
     Active Substance: OXYMETAZOLINE HYDROCHLORIDE OR PHENYLEPHRINE HYDROCHLORIDE
     Dosage: USED FOR YEARS
     Route: 045

REACTIONS (3)
  - Nasal disorder [Recovered/Resolved]
  - Drug dependence [Recovered/Resolved]
  - Incorrect drug administration duration [Unknown]
